FAERS Safety Report 23763389 (Version 2)
Quarter: 2024Q2

REPORT INFORMATION
  Report Type: Spontaneous
  Country: KR (occurrence: KR)
  Receive Date: 20240419
  Receipt Date: 20240515
  Transmission Date: 20240715
  Serious: Yes (Death)
  Sender: FDA-Public Use
  Company Number: KR-BAYER-2024A055161

PATIENT
  Age: 19 Year
  Sex: Female

DRUGS (1)
  1. VITRAKVI [Suspect]
     Active Substance: LAROTRECTINIB
     Indication: Malignant melanoma
     Dosage: 100 MG (0.5 DAY)
     Dates: start: 20211230, end: 202201

REACTIONS (1)
  - Vomiting [Fatal]

NARRATIVE: CASE EVENT DATE: 20220111
